FAERS Safety Report 19480650 (Version 1)
Quarter: 2021Q3

REPORT INFORMATION
  Report Type: Report from Study
  Country: ZA (occurrence: ZA)
  Receive Date: 20210701
  Receipt Date: 20210701
  Transmission Date: 20211014
  Serious: Yes (Death)
  Sender: FDA-Public Use
  Company Number: ZA-ASTRAZENECA-2021A575192

PATIENT
  Age: 18633 Day
  Sex: Male

DRUGS (8)
  1. CARLOC [Concomitant]
     Active Substance: CARVEDILOL
  2. LANOXIN [Concomitant]
     Active Substance: DIGOXIN
  3. SPIRACTIN [Concomitant]
  4. PURESIS [Concomitant]
     Active Substance: FUROSEMIDE
  5. DYNA GLICLAZIDE [Concomitant]
     Active Substance: GLICLAZIDE
  6. SANDOZ K [Concomitant]
     Active Substance: POTASSIUM CHLORIDE
  7. GLUCOPHAGE [Concomitant]
     Active Substance: METFORMIN HYDROCHLORIDE
  8. FORXIGA [Suspect]
     Active Substance: DAPAGLIFLOZIN
     Indication: DIABETES MELLITUS
     Route: 048

REACTIONS (1)
  - Death [Fatal]

NARRATIVE: CASE EVENT DATE: 20210623
